FAERS Safety Report 5168826-7 (Version None)
Quarter: 2006Q4

REPORT INFORMATION
  Report Type: 
  Country: None (occurrence: None)
  Receive Date: 20061205
  Receipt Date: 20061205
  Transmission Date: 20070319
  Serious: Yes (Hospitalization)
  Sender: FDA-Public Use
  Company Number: None

PATIENT
  Age: 30 Year
  Sex: Male
  Weight: 106 kg

DRUGS (2)
  1. KEPPRA [Suspect]
     Indication: BIPOLAR DISORDER
     Dosage: 750MG  BID  PO
     Route: 048
  2. KEPPRA [Suspect]
     Indication: CONVULSION
     Dosage: 750MG  BID  PO
     Route: 048

REACTIONS (8)
  - AGITATION [None]
  - CONVULSION [None]
  - INTENTIONAL OVERDOSE [None]
  - MANIA [None]
  - PARTNER STRESS [None]
  - SEDATION [None]
  - SUICIDAL IDEATION [None]
  - SUICIDE ATTEMPT [None]
